FAERS Safety Report 17506095 (Version 2)
Quarter: 2020Q1

REPORT INFORMATION
  Report Type: Spontaneous
  Country: AU (occurrence: AU)
  Receive Date: 20200306
  Receipt Date: 20200306
  Transmission Date: 20200409
  Serious: Yes (Other)
  Sender: FDA-Public Use
  Company Number: AU-ORION CORPORATION ORION PHARMA-TREX2020-1219

PATIENT
  Age: 26 Year
  Sex: Male

DRUGS (20)
  1. METHOTREXATE (TRADE NAME UNKNOWN) [Suspect]
     Active Substance: METHOTREXATE
     Indication: BURKITT^S LYMPHOMA
     Dosage: C1D1
     Route: 065
     Dates: start: 20191015
  2. METHOTREXATE (TRADE NAME UNKNOWN) [Suspect]
     Active Substance: METHOTREXATE
     Route: 037
     Dates: start: 20200216
  3. CYTARABINE. [Suspect]
     Active Substance: CYTARABINE
     Dosage: CYCLE 2 R-IVAC
     Route: 065
     Dates: start: 20200112
  4. ETOPOSIDE. [Suspect]
     Active Substance: ETOPOSIDE
     Indication: BURKITT^S LYMPHOMA
     Dosage: C1D1
     Route: 065
     Dates: start: 20191114
  5. CYCLOPHOSPHAMIDE. [Suspect]
     Active Substance: CYCLOPHOSPHAMIDE
     Indication: BURKITT^S LYMPHOMA
     Dosage: C1D1
     Route: 065
     Dates: start: 20191015
  6. VINCRISTINE [Suspect]
     Active Substance: VINCRISTINE
     Indication: BURKITT^S LYMPHOMA
     Dosage: C1D1
     Route: 065
     Dates: start: 20191015
  7. CYCLOPHOSPHAMIDE. [Suspect]
     Active Substance: CYCLOPHOSPHAMIDE
     Dosage: C2D2
     Route: 065
  8. RITUXIMAB. [Suspect]
     Active Substance: RITUXIMAB
     Indication: BURKITT^S LYMPHOMA
     Dosage: C1D1 R-IVAC
     Route: 065
     Dates: start: 20191114
  9. CYTARABINE. [Suspect]
     Active Substance: CYTARABINE
     Indication: BURKITT^S LYMPHOMA
     Dosage: C1D1
     Route: 065
     Dates: start: 20191114
  10. RITUXIMAB. [Suspect]
     Active Substance: RITUXIMAB
     Dosage: C1D1 R-CODOX-M
     Route: 065
     Dates: start: 20191015
  11. RITUXIMAB. [Suspect]
     Active Substance: RITUXIMAB
     Dosage: CC2D1-R-CODOX-M)
     Route: 065
  12. IFOSFAMIDE. [Suspect]
     Active Substance: IFOSFAMIDE
     Indication: BURKITT^S LYMPHOMA
     Dosage: C1D1
     Route: 065
     Dates: start: 20191114
  13. VINCRISTINE [Suspect]
     Active Substance: VINCRISTINE
     Dosage: C2D1
     Route: 065
  14. IFOSFAMIDE. [Suspect]
     Active Substance: IFOSFAMIDE
     Dosage: CYCLE 2 R-IVAC
     Route: 065
     Dates: start: 20200112
  15. DOXORUBICIN HCL [Suspect]
     Active Substance: DOXORUBICIN HYDROCHLORIDE
     Indication: BURKITT^S LYMPHOMA
     Dosage: C2D1
     Route: 065
     Dates: start: 20191015
  16. ETOPOSIDE. [Suspect]
     Active Substance: ETOPOSIDE
     Dosage: CYCLE 2 R-IVAC
     Route: 065
     Dates: start: 20200112
  17. METHOTREXATE (TRADE NAME UNKNOWN) [Suspect]
     Active Substance: METHOTREXATE
     Dosage: C2D1
     Route: 065
  18. DOXORUBICIN HCL [Suspect]
     Active Substance: DOXORUBICIN HYDROCHLORIDE
     Dosage: C2D1
     Route: 065
  19. RITUXIMAB. [Suspect]
     Active Substance: RITUXIMAB
     Dosage: CYCLE 2 R-IVAC
     Route: 065
     Dates: start: 20200112
  20. DEXAMETHASONE. [Concomitant]
     Active Substance: DEXAMETHASONE
     Route: 065

REACTIONS (3)
  - Burkitt^s lymphoma [Unknown]
  - Febrile neutropenia [Unknown]
  - Staphylococcal bacteraemia [Unknown]
